FAERS Safety Report 6677713-4 (Version None)
Quarter: 2010Q2

REPORT INFORMATION
  Report Type: 
  Country: None (occurrence: None)
  Receive Date: 20100412
  Receipt Date: 20100112
  Transmission Date: 20101027
  Serious: No
  Sender: FDA-Public Use
  Company Number: US-ALEXION-A200901076

PATIENT
  Sex: Male
  Weight: 68.027 kg

DRUGS (4)
  1. SOLIRIS [Suspect]
     Indication: PAROXYSMAL NOCTURNAL HAEMOGLOBINURIA
     Dosage: 600 MG, QWK
     Route: 042
     Dates: start: 20070201
  2. SOLIRIS [Suspect]
     Dosage: 900 MG, Q2WK
     Route: 042
  3. FOLIC ACID [Concomitant]
     Dosage: 1 MG, QD
  4. ANTRA                              /00661201/ [Concomitant]
     Dosage: 7.5 MG, QD

REACTIONS (2)
  - HAEMOGLOBIN DECREASED [None]
  - NASOPHARYNGITIS [None]
